FAERS Safety Report 25543178 (Version 1)
Quarter: 2025Q3

REPORT INFORMATION
  Report Type: Spontaneous
  Country: EU (occurrence: EU)
  Receive Date: 20250711
  Receipt Date: 20250711
  Transmission Date: 20251021
  Serious: Yes (Disabling)
  Sender: TEVA
  Company Number: None

PATIENT
  Age: 64 Year
  Sex: Male
  Weight: 76 kg

DRUGS (1)
  1. METOPROLOL [Suspect]
     Active Substance: METOPROLOL
     Indication: Hypertension
     Dosage: METOPROLOL TEVA
     Route: 065
     Dates: start: 20250627, end: 20250629

REACTIONS (1)
  - Atrial fibrillation [Not Recovered/Not Resolved]

NARRATIVE: CASE EVENT DATE: 20250629
